FAERS Safety Report 5881818-5 (Version None)
Quarter: 2008Q3

REPORT INFORMATION
  Report Type: 
  Country: None (occurrence: None)
  Receive Date: 20080912
  Receipt Date: 20080711
  Transmission Date: 20090109
  Serious: No
  Sender: FDA-Public Use
  Company Number: US-ABBOTT-08P-163-0462636-00

PATIENT
  Sex: Female

DRUGS (14)
  1. HUMIRA [Suspect]
     Indication: CROHN'S DISEASE
     Route: 050
     Dates: end: 20080401
  2. AZATHIOPRINE [Concomitant]
     Indication: CHEMOTHERAPY
     Dosage: 50 1.5 DAILY
  3. METRONIDAZOLE [Concomitant]
     Indication: CROHN'S DISEASE
  4. FOLIC ACID [Concomitant]
     Indication: DRUG USE FOR UNKNOWN INDICATION
     Dosage: 1 MG DAILY
     Dates: start: 20080601
  5. LEVOTHYROXINE SODIUM [Concomitant]
     Indication: HORMONE REPLACEMENT THERAPY
  6. POTASSIUM CHLORIDE [Concomitant]
     Indication: MINERAL SUPPLEMENTATION
     Dosage: 2-10 A DAY, AS NEEDED
  7. CYANOCOBALAMIN-TANNIN COMPLEX [Concomitant]
     Indication: VITAMIN B COMPLEX DEFICIENCY
     Route: 050
     Dates: start: 20080601
  8. DIPHENOXYLATE HYDROCHLORIDE [Concomitant]
     Indication: DIARRHOEA
  9. MORPHINE [Concomitant]
     Indication: PAIN
     Dosage: 30 MG 1.4 X 4, DAILY, AS NEEDED
  10. MORPHINE [Concomitant]
  11. DRONABINOL [Concomitant]
     Indication: NAUSEA
     Dosage: 1 TABLET DAILY
  12. ONDANSETRON [Concomitant]
     Indication: NAUSEA
     Dosage: 8 MG, EVERY 8 HOURS AS NEEDED
  13. ALPRAZOLAM [Concomitant]
     Indication: TREMOR
  14. MIRTAZAPINE [Concomitant]
     Indication: DRUG USE FOR UNKNOWN INDICATION
     Dosage: 15 MG TAB,HALF TAB 3 TIMES/DAY AS NEEDED

REACTIONS (2)
  - HEADACHE [None]
  - URINARY HESITATION [None]
